FAERS Safety Report 10597043 (Version 1)
Quarter: 2014Q4

REPORT INFORMATION
  Report Type: Spontaneous
  Country: GB (occurrence: GB)
  Receive Date: 20141121
  Receipt Date: 20141121
  Transmission Date: 20150529
  Serious: Yes (Other)
  Sender: FDA-Public Use
  Company Number: GB-ACCORD-027072

PATIENT
  Age: 53 Year
  Sex: Female
  Weight: 53.06 kg

DRUGS (3)
  1. METHOTREXATE [Suspect]
     Active Substance: METHOTREXATE
     Indication: FISTULA
     Route: 048
     Dates: start: 20140917, end: 20141103
  2. WARFARIN [Concomitant]
     Active Substance: WARFARIN
  3. COD-LIVER OIL [Concomitant]
     Active Substance: FISH OIL

REACTIONS (7)
  - Dizziness [Recovered/Resolved]
  - Apathy [Recovered/Resolved]
  - Nausea [Recovered/Resolved]
  - Dyspnoea [Recovered/Resolved]
  - Feeling abnormal [Recovered/Resolved]
  - Fatigue [Recovered/Resolved]
  - Anxiety [Recovered/Resolved]

NARRATIVE: CASE EVENT DATE: 20140918
